FAERS Safety Report 7765720-X (Version None)
Quarter: 2011Q3

REPORT INFORMATION
  Report Type: 
  Country: None (occurrence: None)
  Receive Date: 20110921
  Receipt Date: 20110912
  Transmission Date: 20111222
  Serious: Yes (Death, Hospitalization)
  Sender: FDA-Public Use
  Company Number: GXKR2005DK05683

PATIENT
  Sex: Female
  Weight: 47 kg

DRUGS (3)
  1. METHOTREXATE [Suspect]
     Indication: PSORIASIS
     Dosage: 7.5 MG/ TWO DAYS
     Route: 048
     Dates: start: 20050202
  2. PERSANTIN [Concomitant]
     Indication: ACUTE MYOCARDIAL INFARCTION
     Dosage: 400 MG, UNK
     Route: 048
     Dates: start: 20030101
  3. MEMANTINE HYDROCHLORIDE [Interacting]
     Indication: DEMENTIA ALZHEIMER'S TYPE
     Dosage: 20 MG, UNK
     Route: 048
     Dates: start: 20031218

REACTIONS (5)
  - DEATH [None]
  - DRUG INTERACTION [None]
  - LEUKOPENIA [None]
  - GRANULOCYTOPENIA [None]
  - THROMBOCYTOPENIA [None]
